FAERS Safety Report 19923511 (Version 2)
Quarter: 2021Q4

REPORT INFORMATION
  Report Type: Report from Study
  Country: JP (occurrence: JP)
  Receive Date: 20211006
  Receipt Date: 20211108
  Transmission Date: 20220303
  Serious: Yes (Death, Other)
  Sender: FDA-Public Use
  Company Number: JP-PFIZER INC-202101311763

PATIENT
  Age: 67 Year
  Sex: Female
  Weight: 53 kg

DRUGS (4)
  1. XELJANZ [Suspect]
     Active Substance: TOFACITINIB CITRATE
     Indication: Rheumatoid arthritis
     Dosage: 5 MG, 1X/DAY
     Route: 048
     Dates: start: 20181204, end: 20190513
  2. BETAMETHASONE [Suspect]
     Active Substance: BETAMETHASONE
     Dosage: 1 MG, 1X/DAY
     Route: 042
  3. PREDNISOLONE [Concomitant]
     Active Substance: PREDNISOLONE
     Dosage: UNK
     Dates: start: 20080101, end: 20181204
  4. PREDNISOLONE [Concomitant]
     Active Substance: PREDNISOLONE
     Dosage: 10 MG, 1X/DAY
     Dates: start: 20181204, end: 20190513

REACTIONS (4)
  - Cardiac tamponade [Fatal]
  - Staphylococcal infection [Unknown]
  - Abscess limb [Unknown]
  - Lumbar spinal stenosis [Unknown]

NARRATIVE: CASE EVENT DATE: 20181201
